FAERS Safety Report 6787527-2 (Version None)
Quarter: 2010Q2

REPORT INFORMATION
  Report Type: 
  Country: None (occurrence: None)
  Receive Date: 20100623
  Receipt Date: 20070712
  Transmission Date: 20101027
  Serious: Yes (Hospitalization)
  Sender: FDA-Public Use
  Company Number: US-PFIZER INC-2007037677

PATIENT
  Sex: Female
  Weight: 44 kg

DRUGS (2)
  1. SUTENT [Suspect]
     Indication: METASTATIC RENAL CELL CARCINOMA
     Dates: start: 20070428, end: 20070511
  2. COMPAZINE [Concomitant]

REACTIONS (4)
  - FATIGUE [None]
  - MUCOSAL INFLAMMATION [None]
  - NAUSEA [None]
  - SWOLLEN TONGUE [None]
